FAERS Safety Report 5591527-8 (Version None)
Quarter: 2008Q1

REPORT INFORMATION
  Report Type: 
  Country: None (occurrence: None)
  Receive Date: 20080111
  Receipt Date: 20071227
  Transmission Date: 20080703
  Serious: Yes (Other)
  Sender: FDA-Public Use
  Company Number: 022010

PATIENT
  Age: 13 Year
  Sex: Female

DRUGS (1)
  1. CLARAVIS [Suspect]
     Indication: ACNE
     Dosage: 40 MG, QD, ORAL
     Route: 048
     Dates: start: 20071209, end: 20071227

REACTIONS (15)
  - ADNEXA UTERI PAIN [None]
  - BACK PAIN [None]
  - BONE PAIN [None]
  - CHILLS [None]
  - CHROMATURIA [None]
  - DYSPNOEA [None]
  - DYSURIA [None]
  - FEELING HOT [None]
  - HALLUCINATION [None]
  - HOSTILITY [None]
  - HYPERSOMNIA [None]
  - MIGRAINE [None]
  - NIGHTMARE [None]
  - PAIN [None]
  - VOMITING [None]
